FAERS Safety Report 15280468 (Version 1)
Quarter: 2018Q3

REPORT INFORMATION
  Report Type: Spontaneous
  Country: GB (occurrence: GB)
  Receive Date: 20180815
  Receipt Date: 20180815
  Transmission Date: 20181010
  Serious: Yes (Death, Other)
  Sender: FDA-Public Use
  Company Number: GB-ABBVIE-17S-167-2163348-00

PATIENT
  Age: 7 Month
  Sex: Female
  Weight: 6.08 kg

DRUGS (8)
  1. SYNAGIS [Suspect]
     Active Substance: PALIVIZUMAB
     Dosage: STAT (IMMEDIATELY)
     Route: 030
     Dates: start: 20171110, end: 20171110
  2. SYNAGIS [Suspect]
     Active Substance: PALIVIZUMAB
     Route: 030
  3. SYTRON [Concomitant]
     Indication: PREMATURE BABY
     Dosage: LIQUID FORM
     Route: 048
     Dates: start: 201706, end: 201707
  4. ROTARIX [Concomitant]
     Active Substance: HUMAN ROTAVIRUS A TYPE G1P(8) STRAIN RIX4414 LIVE ANTIGEN
     Indication: IMMUNISATION
  5. SYNAGIS [Suspect]
     Active Substance: PALIVIZUMAB
     Indication: ANTIVIRAL PROPHYLAXIS
     Dosage: STAT (IMMEDIATELY)
     Route: 030
     Dates: start: 20171019, end: 20171019
  6. ABIDEC [Concomitant]
     Indication: PRODUCT USED FOR UNKNOWN INDICATION
  7. DTPA IPV HIB VACCINE [Concomitant]
     Active Substance: DIPHTHERIA AND TETANUS TOXOIDS AND ACELLULAR PERTUSSIS ADSORBED, INACTIVATED POLIOVIRUS AND HAEMOPHILUS B CONJUGATE (TETANUS TOXOID CONJUGATE) VACCINE
     Indication: IMMUNISATION
  8. SYNAGIS [Suspect]
     Active Substance: PALIVIZUMAB
     Route: 030

REACTIONS (2)
  - Sudden infant death syndrome [Fatal]
  - Adverse event [Unknown]

NARRATIVE: CASE EVENT DATE: 20171111
